FAERS Safety Report 23568253 (Version 1)
Quarter: 2024Q1

REPORT INFORMATION
  Report Type: Report from Study
  Country: GB (occurrence: GB)
  Receive Date: 20240227
  Receipt Date: 20240227
  Transmission Date: 20240409
  Serious: Yes (Other)
  Sender: FDA-Public Use
  Company Number: GB-ABBVIE-5653594

PATIENT
  Age: 74 Year
  Sex: Male

DRUGS (12)
  1. RISANKIZUMAB [Suspect]
     Active Substance: RISANKIZUMAB
     Indication: Psoriasis
     Route: 058
     Dates: start: 20210512
  2. RISANKIZUMAB [Suspect]
     Active Substance: RISANKIZUMAB
     Route: 058
     Dates: start: 20210414, end: 20210512
  3. IBUPROFEN [Concomitant]
     Active Substance: IBUPROFEN
     Indication: Periarthritis
     Dosage: TIME INTERVAL: 0.33333333 DAYS: 1 APPLICATION
     Route: 061
     Dates: start: 20231013
  4. COCODAMOL [Concomitant]
     Active Substance: ACETAMINOPHEN\CODEINE PHOSPHATE
     Indication: Radiation associated pain
     Route: 048
     Dates: start: 20230124
  5. APIXABAN [Concomitant]
     Active Substance: APIXABAN
     Indication: Thrombosis prophylaxis
     Route: 048
     Dates: start: 20210325
  6. Hydromol [Concomitant]
     Indication: Psoriasis
     Dosage: 1 APPLICATION
     Route: 061
     Dates: start: 20201010, end: 20210403
  7. CANDESARTAN [Concomitant]
     Active Substance: CANDESARTAN
     Indication: Hypertension
     Route: 048
     Dates: start: 20210726
  8. CANDESARTAN [Concomitant]
     Active Substance: CANDESARTAN
     Indication: Hypertension
     Route: 048
     Dates: start: 20210325, end: 20210725
  9. TAMSULOSIN [Concomitant]
     Active Substance: TAMSULOSIN
     Indication: Prostatomegaly
     Route: 048
     Dates: start: 20210831
  10. DIGOXIN [Concomitant]
     Active Substance: DIGOXIN
     Indication: Cardiac disorder
     Route: 048
     Dates: start: 20210325
  11. CARVEDILOL [Concomitant]
     Active Substance: CARVEDILOL
     Indication: Hypertension
     Route: 048
     Dates: start: 20210325
  12. DOXYCYCLINE [Concomitant]
     Active Substance: DOXYCYCLINE
     Indication: Lower respiratory tract infection
     Route: 048
     Dates: start: 20210514, end: 20210518

REACTIONS (1)
  - Cardiac failure congestive [Not Recovered/Not Resolved]

NARRATIVE: CASE EVENT DATE: 20231121
